FAERS Safety Report 15296943 (Version 1)
Quarter: 2018Q3

REPORT INFORMATION
  Report Type: Spontaneous
  Country: DE (occurrence: DE)
  Receive Date: 20180820
  Receipt Date: 20180820
  Transmission Date: 20181010
  Serious: Yes (Hospitalization, Other)
  Sender: FDA-Public Use
  Company Number: DE-ENDO PHARMACEUTICALS INC-2018-040580

PATIENT
  Age: 47 Year
  Sex: Female

DRUGS (2)
  1. BACLOFEN TABLETS [Suspect]
     Active Substance: BACLOFEN
     Dosage: 8 X 25MG, LAST DOSE 2 DAYS BEFORE
     Route: 065
  2. BACLOFEN TABLETS [Suspect]
     Active Substance: BACLOFEN
     Indication: ALCOHOLISM
     Dosage: INCREASING DOSES OVER 1 WEEK
     Route: 065

REACTIONS (9)
  - Multiple organ dysfunction syndrome [Recovering/Resolving]
  - Stress cardiomyopathy [Unknown]
  - Device related sepsis [Unknown]
  - Delirium [Unknown]
  - Pulmonary oedema [Unknown]
  - Haematoma [Unknown]
  - Amnesia [Unknown]
  - Off label use [Unknown]
  - Acute myocardial infarction [Unknown]
